FAERS Safety Report 7618553-9 (Version None)
Quarter: 2011Q3

REPORT INFORMATION
  Report Type: 
  Country: None (occurrence: None)
  Receive Date: 20110718
  Receipt Date: 20110701
  Transmission Date: 20111222
  Serious: Yes (Other)
  Sender: FDA-Public Use
  Company Number: GB-JNJFOC-20110610006

PATIENT
  Age: 16 Year
  Sex: Male

DRUGS (3)
  1. CHLORPHENIRAMINE MALEATE [Concomitant]
     Indication: PREMEDICATION
  2. HYDROCORTISONE [Concomitant]
     Indication: PREMEDICATION
  3. REMICADE [Suspect]
     Indication: CROHN'S DISEASE
     Route: 042
     Dates: start: 20100201

REACTIONS (4)
  - SWELLING FACE [None]
  - INFUSION RELATED REACTION [None]
  - ERYTHEMA [None]
  - CHEST DISCOMFORT [None]
